FAERS Safety Report 4319817-7 (Version None)
Quarter: 2004Q1

REPORT INFORMATION
  Report Type: 
  Country: None (occurrence: None)
  Receive Date: 20040316
  Receipt Date: 20030623
  Transmission Date: 20041129
  Serious: No
  Sender: FDA-Public Use
  Company Number: 03H-161-0222537-00

PATIENT
  Age: 46 Year
  Sex: Female

DRUGS (1)
  1. DEXTRAN 40 INJ [Suspect]
     Indication: ISCHAEMIA
     Dosage: 10 ML/K, INTRAVENOUS, STARTED ON POSTOP DAY 2
     Route: 042

REACTIONS (8)
  - ACUTE RESPIRATORY DISTRESS SYNDROME [None]
  - CHEST PAIN [None]
  - DRUG HYPERSENSITIVITY [None]
  - DYSPNOEA [None]
  - NAUSEA [None]
  - PULMONARY OEDEMA [None]
  - PYREXIA [None]
  - VOMITING [None]
